FAERS Safety Report 15104267 (Version 1)
Quarter: 2018Q3

REPORT INFORMATION
  Report Type: Spontaneous
  Country: US (occurrence: US)
  Receive Date: 20180703
  Receipt Date: 20180703
  Transmission Date: 20181010
  Serious: No
  Sender: FDA-Public Use
  Company Number: US-DUCHESNAY INC.-2051278

PATIENT
  Age: 67 Year
  Sex: Female

DRUGS (10)
  1. OSPHENA [Suspect]
     Active Substance: OSPEMIFENE
     Indication: PRODUCT USED FOR UNKNOWN INDICATION
     Route: 048
     Dates: start: 20180310, end: 20180525
  2. CYMBALTA [Concomitant]
     Active Substance: DULOXETINE HYDROCHLORIDE
  3. REMERON [Concomitant]
     Active Substance: MIRTAZAPINE
  4. PRILOSEC [Concomitant]
     Active Substance: OMEPRAZOLE MAGNESIUM
  5. TOPROL XL [Concomitant]
     Active Substance: METOPROLOL SUCCINATE
  6. LASIX [Concomitant]
     Active Substance: FUROSEMIDE
  7. PROGESTERONE. [Concomitant]
     Active Substance: PROGESTERONE
  8. GABAPENTIN. [Concomitant]
     Active Substance: GABAPENTIN
  9. RESTORIL [Concomitant]
     Active Substance: TEMAZEPAM
  10. REQUIP [Concomitant]
     Active Substance: ROPINIROLE HYDROCHLORIDE

REACTIONS (1)
  - Hyperhidrosis [Recovered/Resolved]

NARRATIVE: CASE EVENT DATE: 201803
